FAERS Safety Report 18080062 (Version 1)
Quarter: 2020Q3

REPORT INFORMATION
  Report Type: Spontaneous
  Country: US (occurrence: US)
  Receive Date: 20200728
  Receipt Date: 20200728
  Transmission Date: 20201103
  Serious: No
  Sender: FDA-Public Use
  Company Number: None

PATIENT
  Age: 19 Year
  Sex: Female
  Weight: 38.7 kg

DRUGS (3)
  1. JADENU [Suspect]
     Active Substance: DEFERASIROX
     Indication: NEUTROPENIA
     Route: 048
     Dates: start: 20200130, end: 20200728
  2. DEFERASIROX. [Suspect]
     Active Substance: DEFERASIROX
     Indication: NEUTROPENIA
     Route: 048
     Dates: start: 20200130, end: 20200728
  3. ZOFRAN [Concomitant]
     Active Substance: ONDANSETRON HYDROCHLORIDE

REACTIONS (3)
  - Iron overload [None]
  - Transfusion related complication [None]
  - Stress [None]

NARRATIVE: CASE EVENT DATE: 20200728
